FAERS Safety Report 18428694 (Version 1)
Quarter: 2020Q4

REPORT INFORMATION
  Report Type: Report from Study
  Country: None (occurrence: HR)
  Receive Date: 20201026
  Receipt Date: 20201026
  Transmission Date: 20210114
  Serious: Yes (Death, Hospitalization)
  Sender: FDA-Public Use
  Company Number: HR-ABBVIE-20P-216-3620690-00

PATIENT
  Age: 75 Year
  Sex: Female

DRUGS (1)
  1. VENETOCLAX. [Suspect]
     Active Substance: VENETOCLAX
     Indication: ACUTE MYELOID LEUKAEMIA
     Dosage: GRADUAL INCREASE OF DOSE ACCORDING TO DOSING PROTOCOL UP TO 800 MG DOSE
     Route: 048
     Dates: start: 201908, end: 20191101

REACTIONS (4)
  - Diarrhoea [Unknown]
  - General physical health deterioration [Fatal]
  - Diarrhoea [Unknown]
  - Arthralgia [Unknown]

NARRATIVE: CASE EVENT DATE: 201908
